FAERS Safety Report 10213688 (Version 1)
Quarter: 2014Q2

REPORT INFORMATION
  Report Type: Spontaneous
  Country: US (occurrence: None)
  Receive Date: 20140602
  Receipt Date: 20140602
  Transmission Date: 20141212
  Serious: No
  Sender: FDA-Public Use
  Company Number: None

PATIENT
  Age: 60 Year
  Sex: Male
  Weight: 65.77 kg

DRUGS (1)
  1. NABUMETONE [Suspect]
     Indication: JOINT SWELLING
     Dosage: 1 PILL AM AND 1 PILL PM
     Route: 048
     Dates: start: 20140529, end: 20140530

REACTIONS (3)
  - Therapy cessation [None]
  - Hypersensitivity [None]
  - No reaction on previous exposure to drug [None]
